FAERS Safety Report 11338365 (Version 1)
Quarter: 2015Q3

REPORT INFORMATION
  Report Type: Spontaneous
  Country: US (occurrence: US)
  Receive Date: 20150803
  Receipt Date: 20150803
  Transmission Date: 20151125
  Serious: No
  Sender: FDA-Public Use
  Company Number: US-ELI_LILLY_AND_COMPANY-US201004008245

PATIENT
  Sex: Male
  Weight: 18.14 kg

DRUGS (4)
  1. GUANFACINE. [Concomitant]
     Active Substance: GUANFACINE
     Dosage: 1 MG, UNK
  2. STRATTERA [Suspect]
     Active Substance: ATOMOXETINE HYDROCHLORIDE
     Indication: ATTENTION DEFICIT/HYPERACTIVITY DISORDER
     Dosage: 25 MG, DAILY (1/D)
     Dates: start: 2008, end: 201004
  3. GUANFACINE. [Concomitant]
     Active Substance: GUANFACINE
     Dosage: 2 MG, UNK
  4. GUANFACINE. [Concomitant]
     Active Substance: GUANFACINE
     Dosage: 1 MG, DAILY (1/D)

REACTIONS (5)
  - Somnolence [Unknown]
  - Aggression [Not Recovered/Not Resolved]
  - Abnormal behaviour [Not Recovered/Not Resolved]
  - Distractibility [Not Recovered/Not Resolved]
  - Nightmare [Not Recovered/Not Resolved]
